APPROVED DRUG PRODUCT: MEXILETINE HYDROCHLORIDE
Active Ingredient: MEXILETINE HYDROCHLORIDE
Strength: 150MG
Dosage Form/Route: CAPSULE;ORAL
Application: A074450 | Product #001 | TE Code: AB
Applicant: ANI PHARMACEUTICALS INC
Approved: May 16, 1996 | RLD: No | RS: No | Type: RX